FAERS Safety Report 5619752-8 (Version None)
Quarter: 2008Q1

REPORT INFORMATION
  Report Type: 
  Country: None (occurrence: None)
  Receive Date: 20080208
  Receipt Date: 20071211
  Transmission Date: 20080703
  Serious: No
  Sender: FDA-Public Use
  Company Number: A0698355A

PATIENT
  Age: 13 Year
  Sex: Male

DRUGS (1)
  1. ALTABAX [Suspect]
     Indication: STAPHYLOCOCCAL INFECTION
     Dosage: 1APP TWICE PER DAY
     Route: 061
     Dates: start: 20071206, end: 20071206

REACTIONS (1)
  - PRURITUS GENERALISED [None]
